FAERS Safety Report 5612019-3 (Version None)
Quarter: 2008Q1

REPORT INFORMATION
  Report Type: 
  Country: None (occurrence: None)
  Receive Date: 20080128
  Receipt Date: 20080114
  Transmission Date: 20080703
  Serious: Yes (Hospitalization)
  Sender: FDA-Public Use
  Company Number: E3810-01527-SPO-FR

PATIENT
  Age: 78 Year
  Sex: Female

DRUGS (10)
  1. RABEPRAZOLE SODIUM [Suspect]
     Dosage: 20 MG, 1 IN 1 D, ORAL
     Route: 048
     Dates: start: 20071003, end: 20071204
  2. PLAQUENIL [Suspect]
     Indication: SICCA SYNDROME
     Dosage: 400 MG, 2 IN 1 D, ORAL
     Route: 048
     Dates: start: 20070401
  3. FOSAMAX [Suspect]
     Dosage: 10 MG, 1 IN 1 WK, ORAL
     Route: 048
     Dates: start: 20071003
  4. ATARAX [Concomitant]
  5. LERCANIDIPINE [Concomitant]
  6. CACIT (CACIT) [Concomitant]
  7. PHYLARM (FLEX-CARE) [Concomitant]
  8. COLPOTROPHINE (PROMESTRIENE) [Concomitant]
  9. OFLOXACIN [Concomitant]
  10. AMOXICILLIN TRIHYDRATE [Concomitant]

REACTIONS (6)
  - ALPHA HAEMOLYTIC STREPTOCOCCAL INFECTION [None]
  - CULTURE URINE POSITIVE [None]
  - INFLAMMATION [None]
  - NEPHRITIS INTERSTITIAL [None]
  - RASH PAPULAR [None]
  - RENAL FAILURE ACUTE [None]
